FAERS Safety Report 8549241 (Version 2)
Quarter: 2015Q2

REPORT INFORMATION
  Report Type: Spontaneous
  Country: US (occurrence: US)
  Receive Date: 20120507
  Receipt Date: 20150420
  Transmission Date: 20150821
  Serious: Yes (Other)
  Sender: FDA-Public Use
  Company Number: US-JNJFOC-20110804394

PATIENT
  Sex: Female

DRUGS (4)
  1. LEVAQUIN [Suspect]
     Active Substance: LEVOFLOXACIN
     Indication: ATYPICAL PNEUMONIA
     Route: 048
     Dates: start: 2000
  2. LEVAQUIN [Suspect]
     Active Substance: LEVOFLOXACIN
     Indication: SINUSITIS
     Route: 048
     Dates: start: 2000
  3. CIPROFLOXACIN. [Suspect]
     Active Substance: CIPROFLOXACIN
     Indication: RENAL DISORDER
     Route: 048
  4. CIPROFLOXACIN. [Suspect]
     Active Substance: CIPROFLOXACIN
     Indication: HAEMORRHAGE
     Route: 048

REACTIONS (7)
  - Rotator cuff syndrome [Unknown]
  - Tendonitis [Unknown]
  - Rotator cuff syndrome [Not Recovered/Not Resolved]
  - Epicondylitis [Unknown]
  - Tendonitis [Not Recovered/Not Resolved]
  - Tendon rupture [Unknown]
  - Depression [Unknown]

NARRATIVE: CASE EVENT DATE: 2000
